FAERS Safety Report 9061596 (Version 1)
Quarter: 2013Q1

REPORT INFORMATION
  Report Type: Spontaneous
  Country: US (occurrence: None)
  Receive Date: 20130118
  Receipt Date: 20130118
  Transmission Date: 20140127
  Serious: Yes (Other)
  Sender: FDA-Public Use
  Company Number: 2013PL000004

PATIENT
  Age: 36 Year
  Sex: Female

DRUGS (24)
  1. IMURAN (AZATHIOPRINE) [Suspect]
     Indication: PRODUCT USED FOR UNKNOWN INDICATION
  2. BELIMUMAB [Suspect]
     Route: 042
     Dates: start: 201006, end: 201210
  3. ZOFRAN [Suspect]
  4. PLAQUENIL /00072602/ [Suspect]
  5. NORMAL IMMUNOGLOBULIN [Concomitant]
  6. MORPHINE SULFATE [Concomitant]
  7. DIOVAN HCT [Concomitant]
  8. HYOSCYAMINE [Concomitant]
  9. GABAPENTIN [Concomitant]
  10. VENTOLIN /00139502/ [Concomitant]
  11. ADVAIR [Concomitant]
  12. ASPIRIN [Concomitant]
  13. INSULIN ASPART [Concomitant]
  14. MULTIVITAMIN /00097801/ [Concomitant]
  15. DIPHENHYDRAMINE HCL [Concomitant]
  16. CALCIUM CARBONATE [Concomitant]
  17. IBUPROFEN [Concomitant]
  18. ASCORBIC ACID [Concomitant]
  19. CALCIUM SALT [Concomitant]
  20. VITAMIN D [Concomitant]
  21. CRANBERRY [Concomitant]
  22. MEDROL /00049601/ [Concomitant]
  23. MORPHINE [Concomitant]
  24. ALBUTEROL SULFATE [Concomitant]

REACTIONS (19)
  - Pneumonia [None]
  - Systemic lupus erythematosus [None]
  - Gastric haemorrhage [None]
  - Crohn^s disease [None]
  - Influenza [None]
  - Muscle spasms [None]
  - Muscle spasms [None]
  - Vomiting [None]
  - Dehydration [None]
  - Fatigue [None]
  - Nausea [None]
  - Bronchitis [None]
  - Pleurisy [None]
  - Bone pain [None]
  - Weight decreased [None]
  - Weight increased [None]
  - White blood cell count decreased [None]
  - Anaemia [None]
  - Drug ineffective [None]
